FAERS Safety Report 5218450-2 (Version None)
Quarter: 2007Q1

REPORT INFORMATION
  Report Type: 
  Country: None (occurrence: None)
  Receive Date: 20061201
  Receipt Date: 20051016
  Transmission Date: 20070707
  Serious: Yes (Other)
  Sender: FDA-Public Use
  Company Number: SUS1-2005-00775

PATIENT
  Age: 5 Year
  Sex: Male
  Weight: 15.9 kg

DRUGS (3)
  1. ADDERALL 15 [Suspect]
     Dosage: 15M G, 1X/DAY: QD; EVERY AFTERNOON
     Dates: start: 20050201
  2. ADDERALL 20 [Suspect]
     Dosage: 20 MG, 1/DAY: QD; EVERY MORNING
     Dates: start: 20051002
  3. SEROQUEL [Concomitant]

REACTIONS (1)
  - CONVULSION [None]
